FAERS Safety Report 5120067-5 (Version None)
Quarter: 2006Q3

REPORT INFORMATION
  Report Type: 
  Country: None (occurrence: None)
  Receive Date: 20060929
  Receipt Date: 20060918
  Transmission Date: 20061208
  Serious: No
  Sender: FDA-Public Use
  Company Number: E2090-00070-SPO-GB

PATIENT
  Age: 48 Year
  Sex: Male

DRUGS (3)
  1. ZONEGRAN [Suspect]
     Dosage: ORAL
     Route: 048
  2. TEGRETOL [Concomitant]
  3. TOPIRAMATE [Concomitant]

REACTIONS (3)
  - INTERNATIONAL NORMALISED RATIO DECREASED [None]
  - INTERNATIONAL NORMALISED RATIO INCREASED [None]
  - RECTAL HAEMORRHAGE [None]
